FAERS Safety Report 6424157-6 (Version None)
Quarter: 2009Q4

REPORT INFORMATION
  Report Type: 
  Country: None (occurrence: None)
  Receive Date: 20091102
  Receipt Date: 20091023
  Transmission Date: 20100525
  Serious: Yes (Hospitalization)
  Sender: FDA-Public Use
  Company Number: JP-ABBOTT-09P-087-0559581-00

PATIENT
  Sex: Female
  Weight: 50 kg

DRUGS (20)
  1. HUMIRA [Suspect]
     Indication: RHEUMATOID ARTHRITIS
     Route: 058
     Dates: start: 20090218, end: 20090416
  2. HUMIRA [Suspect]
     Route: 058
     Dates: start: 20090501, end: 20090501
  3. HUMIRA [Suspect]
     Route: 058
     Dates: start: 20090529, end: 20090703
  4. HUMIRA [Suspect]
     Route: 058
     Dates: start: 20090807
  5. PREDNISONE [Concomitant]
     Indication: RHEUMATOID ARTHRITIS
     Dosage: 5 MG DAILY
  6. ISONIAZID [Concomitant]
     Indication: ANTIBIOTIC PROPHYLAXIS
     Dosage: 100 MG DAILY
     Dates: start: 20090218, end: 20090305
  7. BROTIZOLAM [Concomitant]
     Indication: PROPHYLAXIS
     Dosage: 0.25 MG DAILY
  8. BROTIZOLAM [Concomitant]
     Indication: INSOMNIA
  9. FAMOTIDINE [Concomitant]
     Indication: GASTRITIS PROPHYLAXIS
  10. FAMOTIDINE [Concomitant]
  11. METHOTREXATE [Concomitant]
     Indication: RHEUMATOID ARTHRITIS
     Dates: end: 20090522
  12. DIAZEPAM [Concomitant]
     Indication: PROPHYLAXIS
     Dates: start: 20090306, end: 20090320
  13. DIAZEPAM [Concomitant]
     Indication: INSOMNIA
  14. MAGNESIUM CITRATE [Concomitant]
     Indication: BOWEL PREPARATION
     Dates: start: 20090410, end: 20090410
  15. LACTOMIN [Concomitant]
     Indication: BOWEL MOVEMENT IRREGULARITY
     Dates: start: 20090416, end: 20090528
  16. MAGNESIUM OXIDE [Concomitant]
     Indication: BOWEL MOVEMENT IRREGULARITY
     Dates: start: 20090416, end: 20090528
  17. COMMON COLD REMEDY [Concomitant]
     Indication: PROPHYLAXIS
     Dates: start: 20090417, end: 20090423
  18. COMMON COLD REMEDY [Concomitant]
     Indication: NASOPHARYNGITIS
  19. POLAPREZINC [Concomitant]
     Indication: GASTRITIS PROPHYLAXIS
     Dates: start: 20090428, end: 20090528
  20. POLAPREZINC [Concomitant]

REACTIONS (1)
  - TENDON RUPTURE [None]
